FAERS Safety Report 24324294 (Version 1)
Quarter: 2024Q3

REPORT INFORMATION
  Report Type: Spontaneous
  Country: PL (occurrence: PL)
  Receive Date: 20240916
  Receipt Date: 20240916
  Transmission Date: 20241017
  Serious: Yes (Other)
  Sender: AMGEN
  Company Number: PL-PFIZER INC-PV202400114693

PATIENT
  Age: 73 Year
  Sex: Female

DRUGS (14)
  1. DENOSUMAB [Suspect]
     Active Substance: DENOSUMAB
     Indication: Bone pain
     Dosage: 120 MILLIGRAM, EVERY 28 DAYS
     Route: 065
     Dates: start: 202205
  2. FULVESTRANT [Suspect]
     Active Substance: FULVESTRANT
     Indication: Metastases to lung
     Dosage: UNK
     Route: 065
     Dates: start: 202205
  3. FULVESTRANT [Suspect]
     Active Substance: FULVESTRANT
     Indication: Metastases to liver
  4. FULVESTRANT [Suspect]
     Active Substance: FULVESTRANT
     Indication: Invasive ductal breast carcinoma
  5. VERZENIO [Suspect]
     Active Substance: ABEMACICLIB
     Indication: Invasive ductal breast carcinoma
     Dosage: UNK
     Route: 065
     Dates: start: 202205
  6. VERZENIO [Suspect]
     Active Substance: ABEMACICLIB
     Indication: Metastases to lung
  7. VERZENIO [Suspect]
     Active Substance: ABEMACICLIB
     Indication: Metastases to liver
  8. KISQALI [Suspect]
     Active Substance: RIBOCICLIB
     Indication: Invasive ductal breast carcinoma
     Dosage: UNK
     Route: 065
     Dates: start: 202205
  9. KISQALI [Suspect]
     Active Substance: RIBOCICLIB
     Indication: Metastases to liver
  10. KISQALI [Suspect]
     Active Substance: RIBOCICLIB
     Indication: Metastases to lung
  11. IBRANCE [Suspect]
     Active Substance: PALBOCICLIB
     Indication: Invasive ductal breast carcinoma
     Dosage: 125 MG, DAILY FOR 3 WEEKS, THEN A WEEK BREAK
     Route: 065
     Dates: start: 202205
  12. IBRANCE [Suspect]
     Active Substance: PALBOCICLIB
     Indication: Metastases to lung
     Dosage: 100 MG, 1X/DAY
     Route: 065
  13. IBRANCE [Suspect]
     Active Substance: PALBOCICLIB
     Indication: Metastases to liver
  14. OXYCONTIN [Concomitant]
     Active Substance: OXYCODONE HYDROCHLORIDE
     Indication: Analgesic therapy
     Dosage: 10 MG, 2X/DAY
     Route: 065

REACTIONS (3)
  - Leukopenia [Unknown]
  - Neutropenia [Recovering/Resolving]
  - Upper respiratory tract inflammation [Unknown]
